FAERS Safety Report 10543487 (Version 1)
Quarter: 2014Q4

REPORT INFORMATION
  Report Type: Spontaneous
  Country: US (occurrence: None)
  Receive Date: 20141010
  Receipt Date: 20141010
  Transmission Date: 20150529
  Serious: No
  Sender: FDA-Public Use
  Company Number: 163-POMAL-14080883

PATIENT
  Age: 48 Year
  Sex: Male

DRUGS (1)
  1. POMALYST [Suspect]
     Active Substance: POMALIDOMIDE
     Indication: PLASMA CELL MYELOMA
     Dosage: 21 IN 28 D, PO
     Route: 048
     Dates: start: 20140616

REACTIONS (4)
  - Dizziness [None]
  - Dyspnoea [None]
  - Nausea [None]
  - Neuralgia [None]

NARRATIVE: CASE EVENT DATE: 20140616
